FAERS Safety Report 17393704 (Version 4)
Quarter: 2020Q1

REPORT INFORMATION
  Report Type: Report from Study
  Country: US (occurrence: US)
  Receive Date: 20200209
  Receipt Date: 20200328
  Transmission Date: 20200409
  Serious: Yes (Hospitalization, Disabling)
  Sender: FDA-Public Use
  Company Number: NVSC2020US030326

PATIENT
  Sex: Female

DRUGS (2)
  1. PIQRAY [Suspect]
     Active Substance: ALPELISIB
     Indication: PRODUCT USED FOR UNKNOWN INDICATION
     Dosage: UNK
     Route: 048
  2. PIQRAY [Suspect]
     Active Substance: ALPELISIB
     Route: 048

REACTIONS (8)
  - Hyperglycaemia [Not Recovered/Not Resolved]
  - Hyperphagia [Unknown]
  - Polyuria [Unknown]
  - Fatigue [Unknown]
  - Confusional state [Unknown]
  - Diabetic ketoacidosis [Not Recovered/Not Resolved]
  - Dry mouth [Unknown]
  - Polydipsia [Unknown]
